FAERS Safety Report 5022232-4 (Version None)
Quarter: 2006Q2

REPORT INFORMATION
  Report Type: 
  Country: None (occurrence: None)
  Receive Date: 20060605
  Receipt Date: 20060523
  Transmission Date: 20061013
  Serious: Yes (Hospitalization)
  Sender: FDA-Public Use
  Company Number: 2006063919

PATIENT
  Age: 57 Year
  Sex: Male

DRUGS (9)
  1. ALPRAZOLAM [Suspect]
     Indication: ILL-DEFINED DISORDER
     Dosage: 0.4 MG (0.4 MG, 1 IN 1 D), ORAL
     Route: 048
  2. MIDORINE HCL [Concomitant]
  3. JUVELA NICOTINATE (TOCOPHERYL NICOTINATE) [Concomitant]
  4. VITAMEDIN CAPSULE (BENFOTIAMINE, CYANOCOBALAMIN, PYRIDOXINE HYDROCHLOR [Concomitant]
  5. BIOFERMIN (BACILLUS SUBTILIS, LACTOBACILLUS ACIDOPHILUS, STREPTOCOCCUS [Concomitant]
  6. AZUNOL (SODIUM GUALENATE) [Concomitant]
  7. ALLOPURINOL [Concomitant]
  8. SELTOUCH (FELBINAC) [Concomitant]
  9. ISODINE (POVIDONE-IODINE) [Concomitant]

REACTIONS (4)
  - BLOOD PRESSURE DECREASED [None]
  - DEPRESSED LEVEL OF CONSCIOUSNESS [None]
  - SOMNOLENCE [None]
  - TREATMENT NONCOMPLIANCE [None]
